FAERS Safety Report 6666699-4 (Version None)
Quarter: 2010Q2

REPORT INFORMATION
  Report Type: 
  Country: None (occurrence: None)
  Receive Date: 20100405
  Receipt Date: 20100317
  Transmission Date: 20101027
  Serious: Yes (Hospitalization)
  Sender: FDA-Public Use
  Company Number: AR-JNJFOC-20100305404

PATIENT
  Sex: Male

DRUGS (1)
  1. IBUPROFEN [Suspect]
     Indication: PYREXIA
     Route: 048

REACTIONS (4)
  - GASTROENTERITIS [None]
  - HAEMORRHAGE [None]
  - PRODUCT CONTAMINATION MICROBIAL [None]
  - VOMITING [None]
